FAERS Safety Report 10623697 (Version 3)
Quarter: 2014Q4

REPORT INFORMATION
  Report Type: Report from Study
  Country: FR (occurrence: FR)
  Receive Date: 20141203
  Receipt Date: 20141204
  Transmission Date: 20150529
  Serious: Yes (Other)
  Sender: FDA-Public Use
  Company Number: FR-JNJFOC-20140517514

PATIENT
  Age: 60 Year
  Sex: Male
  Weight: 100 kg

DRUGS (5)
  1. BARACLUDE [Concomitant]
     Active Substance: ENTECAVIR
     Indication: HEPATITIS B
  2. IBRUTINIB [Suspect]
     Active Substance: IBRUTINIB
     Indication: CHRONIC LYMPHOCYTIC LEUKAEMIA
     Route: 048
     Dates: start: 20140522
  3. IBRUTINIB [Suspect]
     Active Substance: IBRUTINIB
     Indication: CHRONIC LYMPHOCYTIC LEUKAEMIA
     Route: 048
     Dates: start: 20140320, end: 20140509
  4. DRIPTANE [Concomitant]
     Active Substance: OXYBUTYNIN
     Dosage: INDICATION: VESICAL DISTURBANCES
  5. XYZALL [Concomitant]
     Active Substance: LEVOCETIRIZINE DIHYDROCHLORIDE
     Dosage: VESICAL DISTURBANCES

REACTIONS (5)
  - White blood cell count increased [Unknown]
  - Cardiac flutter [Recovered/Resolved]
  - Acute sinusitis [Unknown]
  - Lymphocyte count increased [Unknown]
  - Atrial fibrillation [Unknown]

NARRATIVE: CASE EVENT DATE: 20140514
